FAERS Safety Report 4292556-7 (Version None)
Quarter: 2004Q1

REPORT INFORMATION
  Report Type: 
  Country: None (occurrence: None)
  Receive Date: 20040126
  Receipt Date: 20031021
  Transmission Date: 20041129
  Serious: No
  Sender: FDA-Public Use
  Company Number: USA031050332

PATIENT
  Age: 81 Year
  Sex: Female
  Weight: 45 kg

DRUGS (11)
  1. FORTEO [Suspect]
     Dates: start: 20031015
  2. METHOTREXATE [Concomitant]
  3. FOSAMAX [Concomitant]
  4. MIACALCIN(CALCITONIN SODIUM) [Concomitant]
  5. CALCIUM [Concomitant]
  6. SYNTHROID [Concomitant]
  7. ORUVAIL [Concomitant]
  8. TOPROL-XL [Concomitant]
  9. NORVASC [Concomitant]
  10. FOLIC ACID [Concomitant]
  11. PREDNISONE [Concomitant]

REACTIONS (6)
  - ARTHRALGIA [None]
  - BONE PAIN [None]
  - FEELING ABNORMAL [None]
  - HEADACHE [None]
  - MUSCULOSKELETAL STIFFNESS [None]
  - SPINAL DISORDER [None]
